FAERS Safety Report 12374798 (Version 1)
Quarter: 2016Q2

REPORT INFORMATION
  Report Type: Spontaneous
  Country: None (occurrence: None)
  Receive Date: 20160516
  Receipt Date: 20160516
  Transmission Date: 20160815
  Serious: Yes (Other)
  Sender: FDA-Public Use
  Company Number: None

PATIENT
  Age: 24 Year
  Sex: Female
  Weight: 58.97 kg

DRUGS (2)
  1. TROPICAMIDE 0.5%, 0.5 % [Suspect]
     Active Substance: TROPICAMIDE
     Indication: PUPIL DILATION PROCEDURE
     Route: 031
     Dates: start: 20160509
  2. SPRINTEC [Concomitant]
     Active Substance: ETHINYL ESTRADIOL\NORGESTIMATE

REACTIONS (5)
  - Blood pressure decreased [None]
  - Heart rate decreased [None]
  - Dizziness [None]
  - Syncope [None]
  - Nausea [None]

NARRATIVE: CASE EVENT DATE: 20160509
